FAERS Safety Report 7421601-2 (Version None)
Quarter: 2011Q2

REPORT INFORMATION
  Report Type: 
  Country: None (occurrence: None)
  Receive Date: 20110418
  Receipt Date: 20110407
  Transmission Date: 20111010
  Serious: Yes (Other)
  Sender: FDA-Public Use
  Company Number: US-ASTRAZENECA-2011SE20070

PATIENT
  Age: 52 Year
  Sex: Female

DRUGS (5)
  1. NEXIUM [Suspect]
     Indication: REFLUX OESOPHAGITIS
     Route: 048
     Dates: start: 20010101
  2. PRILOSEC [Suspect]
     Indication: REFLUX OESOPHAGITIS
     Route: 048
     Dates: start: 19950101, end: 20010101
  3. TOPROL-XL [Concomitant]
     Indication: HYPERTENSION
     Route: 048
  4. ACCUPRIL [Concomitant]
     Indication: HYPERTENSION
  5. SYNTHROID [Concomitant]
     Indication: THYROID DISORDER

REACTIONS (5)
  - PAIN [None]
  - OSTEOARTHRITIS [None]
  - DRUG DOSE OMISSION [None]
  - HAEMATEMESIS [None]
  - SPINAL OSTEOARTHRITIS [None]
